FAERS Safety Report 7778527-4 (Version None)
Quarter: 2011Q3

REPORT INFORMATION
  Report Type: 
  Country: None (occurrence: None)
  Receive Date: 20110926
  Receipt Date: 20110913
  Transmission Date: 20111222
  Serious: Yes (Hospitalization)
  Sender: FDA-Public Use
  Company Number: US-BAYER-2010-001802

PATIENT
  Age: 20 Year
  Sex: Female
  Weight: 95.238 kg

DRUGS (5)
  1. HYDROCODONE [Concomitant]
     Dosage: UNK
     Dates: start: 20060627
  2. PROPOXYPHENE HYDROCHLORIDE [Concomitant]
     Dosage: UNK
     Dates: start: 20060630
  3. CLINDAMYCIN [Concomitant]
     Dosage: UNK
     Dates: start: 20060627
  4. YASMIN [Suspect]
     Indication: PRODUCT USED FOR UNKNOWN INDICATION
     Dosage: UNK
     Dates: start: 20020101, end: 20060101
  5. CEPHALEXIN [Concomitant]
     Dosage: UNK
     Dates: start: 20060630

REACTIONS (1)
  - DEEP VEIN THROMBOSIS [None]
